FAERS Safety Report 5001805-9 (Version None)
Quarter: 2006Q2

REPORT INFORMATION
  Report Type: 
  Country: None (occurrence: None)
  Receive Date: 20060515
  Receipt Date: 20060330
  Transmission Date: 20061013
  Serious: Yes (Other)
  Sender: FDA-Public Use
  Company Number: US-GLAXOSMITHKLINE-A0599900A

PATIENT
  Age: 71 Year
  Sex: Male
  Weight: 110.9 kg

DRUGS (6)
  1. AVANDIA [Suspect]
     Indication: DIABETES MELLITUS NON-INSULIN-DEPENDENT
     Route: 048
  2. METFORMIN [Concomitant]
     Dosage: 2G PER DAY
     Route: 048
  3. LOVASTATIN [Concomitant]
     Dosage: 20MG PER DAY
     Route: 048
  4. DIOVAN [Concomitant]
     Dosage: 80MG PER DAY
  5. PROTONIX [Concomitant]
     Dosage: 40MG PER DAY
  6. PERCOCET [Concomitant]

REACTIONS (1)
  - PAPILLOEDEMA [None]
